FAERS Safety Report 24424763 (Version 1)
Quarter: 2024Q4

REPORT INFORMATION
  Report Type: Spontaneous
  Country: US (occurrence: None)
  Receive Date: 20241010
  Receipt Date: 20241010
  Transmission Date: 20250114
  Serious: Yes (Other)
  Sender: Public
  Company Number: None

PATIENT
  Age: 61 Year
  Sex: Female
  Weight: 56.25 kg

DRUGS (6)
  1. TYMLOS [Suspect]
     Active Substance: ABALOPARATIDE
     Indication: Osteoporosis
     Dosage: OTHER QUANTITY : 1 INJECTION(S);?FREQUENCY : DAILY;?
     Route: 058
     Dates: start: 20241009, end: 20241009
  2. VITAMIN D [Concomitant]
     Active Substance: VITAMIN D NOS
  3. Lutein + Zeazanthin [Concomitant]
  4. MAGNESIUM [Concomitant]
     Active Substance: MAGNESIUM
  5. joint supplement [Concomitant]
  6. TYLENOL [Concomitant]
     Active Substance: ACETAMINOPHEN

REACTIONS (4)
  - Dizziness [None]
  - Tremor [None]
  - Muscle spasms [None]
  - Dysstasia [None]

NARRATIVE: CASE EVENT DATE: 20241009
